FAERS Safety Report 10241537 (Version 1)
Quarter: 2014Q2

REPORT INFORMATION
  Report Type: Spontaneous
  Country: US (occurrence: None)
  Receive Date: 20140613
  Receipt Date: 20140613
  Transmission Date: 20141212
  Serious: Yes (Death)
  Sender: FDA-Public Use
  Company Number: 2014US003368

PATIENT
  Sex: 0

DRUGS (1)
  1. ICLUSIG [Suspect]
     Indication: NON-SMALL CELL LUNG CANCER
     Dates: start: 2014

REACTIONS (2)
  - Non-small cell lung cancer [None]
  - Off label use [None]
